FAERS Safety Report 9984887 (Version 1)
Quarter: 2014Q1

REPORT INFORMATION
  Report Type: Report from Study
  Country: US (occurrence: US)
  Receive Date: 20140307
  Receipt Date: 20140307
  Transmission Date: 20141002
  Serious: No
  Sender: FDA-Public Use
  Company Number: US-ABBVIE-14P-163-1186385-00

PATIENT
  Age: 66 Year
  Sex: Female

DRUGS (12)
  1. HUMIRA [Suspect]
     Indication: PSORIATIC ARTHROPATHY
     Dates: start: 201301
  2. METHOTREXATE [Concomitant]
     Indication: RHEUMATOID ARTHRITIS
  3. LISINOPRIL [Concomitant]
     Indication: HYPERTENSION
  4. TRIAMTERENE AND HYDROCHLOROTHIAZIDE [Concomitant]
     Indication: HYPERTENSION
     Dosage: 37.5 MG/25MG
  5. TRIAMTERENE AND HYDROCHLOROTHIAZIDE [Concomitant]
     Indication: FLUID RETENTION
  6. LEVOTHYROXINE [Concomitant]
     Indication: THYROID DISORDER
     Dosage: MONDAY TO FRIDAY
  7. LEVOTHYROXINE [Concomitant]
     Dosage: FOR SATURDAY
  8. FOLIC ACID [Concomitant]
     Indication: PRODUCT USED FOR UNKNOWN INDICATION
  9. CALCIUM [Concomitant]
     Indication: PRODUCT USED FOR UNKNOWN INDICATION
     Dosage: 1200 MG PLUS 800 IU
  10. KETOPROFEN [Concomitant]
     Indication: ARTHRALGIA
  11. RESCUE [Concomitant]
     Indication: ASTHMA
  12. DIAZEPAM [Concomitant]
     Indication: MUSCLE SPASMS
     Dosage: AT NIGHT

REACTIONS (3)
  - Increased upper airway secretion [Recovered/Resolved]
  - Upper respiratory tract infection [Recovered/Resolved]
  - Cough [Recovered/Resolved]
